FAERS Safety Report 7628720-6 (Version None)
Quarter: 2011Q3

REPORT INFORMATION
  Report Type: 
  Country: None (occurrence: None)
  Receive Date: 20110722
  Receipt Date: 20110712
  Transmission Date: 20111222
  Serious: Yes (Other)
  Sender: FDA-Public Use
  Company Number: US-JNJFOC-20110610621

PATIENT
  Sex: Female

DRUGS (4)
  1. STELARA [Suspect]
     Indication: PSORIASIS
     Route: 058
     Dates: start: 20110427
  2. STELARA [Suspect]
     Indication: PSORIATIC ARTHROPATHY
     Route: 058
     Dates: start: 20100211, end: 20110202
  3. STELARA [Suspect]
     Route: 058
     Dates: start: 20100211, end: 20110202
  4. STELARA [Suspect]
     Route: 058
     Dates: start: 20110427

REACTIONS (1)
  - MYCOBACTERIUM ABSCESSUS INFECTION [None]
